FAERS Safety Report 26140570 (Version 2)
Quarter: 2025Q4

REPORT INFORMATION
  Report Type: Spontaneous
  Country: EU (occurrence: EU)
  Receive Date: 20251210
  Receipt Date: 20251216
  Transmission Date: 20260117
  Serious: Yes (Life-Threatening, Hospitalization)
  Sender: OTSUKA
  Company Number: None

PATIENT
  Age: 18 Year
  Sex: Female
  Weight: 55 kg

DRUGS (5)
  1. ARIPIPRAZOLE [Suspect]
     Active Substance: ARIPIPRAZOLE
     Indication: Poisoning deliberate
     Dosage: 840 MG, QD (15 MG, 56 TABLETS)
     Route: 061
     Dates: start: 20251103, end: 20251103
  2. DIAZEPAM [Suspect]
     Active Substance: DIAZEPAM
     Indication: Poisoning deliberate
     Dosage: 300 MG, QD
     Route: 061
     Dates: start: 20251103, end: 20251103
  3. CHLORPROMAZINE [Suspect]
     Active Substance: CHLORPROMAZINE
     Indication: Poisoning deliberate
     Dosage: 6500 MG, QD (100 MG, 65 TABLETS)
     Route: 061
     Dates: start: 20251103, end: 20251103
  4. LOXAPINE [Suspect]
     Active Substance: LOXAPINE
     Indication: Poisoning deliberate
     Dosage: 1250 MG, QD (25 MG, 50 TABLETS)
     Route: 061
     Dates: start: 20251103, end: 20251103
  5. CYAMEMAZINE [Suspect]
     Active Substance: CYAMEMAZINE
     Indication: Poisoning deliberate
     Dosage: 3000 MG, QD (25 MG, 120 FILM-COATED SCORED TABLETS)
     Route: 061
     Dates: start: 20251103, end: 20251103

REACTIONS (4)
  - Coma [Recovered/Resolved]
  - Poisoning deliberate [Recovered/Resolved]
  - Atelectasis [Recovered/Resolved]
  - Pneumonia aspiration [Recovered/Resolved]

NARRATIVE: CASE EVENT DATE: 20251103
